FAERS Safety Report 18787156 (Version 2)
Quarter: 2021Q1

REPORT INFORMATION
  Report Type: Spontaneous
  Country: US (occurrence: US)
  Receive Date: 20210125
  Receipt Date: 20210331
  Transmission Date: 20210419
  Serious: Yes (Other)
  Sender: FDA-Public Use
  Company Number: US-AGIOS-2101US02459

PATIENT
  Age: 77 Year
  Sex: Male

DRUGS (7)
  1. VENETOCLAX. [Concomitant]
     Active Substance: VENETOCLAX
     Dosage: 100 MILLIGRAM, QD
     Route: 065
  2. AZACITIDINE. [Concomitant]
     Active Substance: AZACITIDINE
     Route: 065
  3. PLATELETS [Concomitant]
     Active Substance: HUMAN PLATELET, ALLOGENIC
     Route: 065
  4. TIBSOVO [Suspect]
     Active Substance: IVOSIDENIB
     Route: 065
  5. GRANULOCYTE COLONY STIMULATING FACTOR [Concomitant]
     Active Substance: GRANULOCYTE COLONY-STIMULATING FACTOR NOS
     Route: 065
  6. POSACONAZOLE [Concomitant]
     Active Substance: POSACONAZOLE
     Route: 065
  7. VENETOCLAX. [Concomitant]
     Active Substance: VENETOCLAX
     Route: 065

REACTIONS (5)
  - Lung infiltration [Unknown]
  - White blood cell count increased [Unknown]
  - Weight increased [Unknown]
  - Hypoxia [Unknown]
  - Pyrexia [Unknown]
